FAERS Safety Report 20599917 (Version 1)
Quarter: 2022Q1

REPORT INFORMATION
  Report Type: Spontaneous
  Country: US (occurrence: US)
  Receive Date: 20220316
  Receipt Date: 20220316
  Transmission Date: 20220424
  Serious: Yes (Other)
  Sender: FDA-Public Use
  Company Number: US-AMGEN-USASP2022044050

PATIENT
  Age: 47 Year
  Sex: Male

DRUGS (1)
  1. AIMOVIG [Suspect]
     Active Substance: ERENUMAB-AOOE
     Indication: Migraine
     Dosage: 70 MILLIGRAM, QMO
     Route: 065

REACTIONS (5)
  - Knee operation [Unknown]
  - Migraine [Unknown]
  - Muscular weakness [Unknown]
  - Skin abrasion [Unknown]
  - Indifference [Unknown]

NARRATIVE: CASE EVENT DATE: 20220310
